FAERS Safety Report 5532104-4 (Version None)
Quarter: 2007Q4

REPORT INFORMATION
  Report Type: 
  Country: None (occurrence: None)
  Receive Date: 20071203
  Receipt Date: 20071127
  Transmission Date: 20080405
  Serious: Yes (Hospitalization)
  Sender: FDA-Public Use
  Company Number: D0054953A

PATIENT
  Sex: Female

DRUGS (2)
  1. ADARTREL [Suspect]
     Route: 048
     Dates: start: 20070101
  2. SIFROL [Concomitant]
     Route: 065

REACTIONS (4)
  - ARTERIAL DISORDER [None]
  - HEADACHE [None]
  - HERPES ZOSTER [None]
  - TRANSIENT ISCHAEMIC ATTACK [None]
